FAERS Safety Report 10160485 (Version 1)
Quarter: 2014Q2

REPORT INFORMATION
  Report Type: Spontaneous
  Country: US (occurrence: US)
  Receive Date: 20140508
  Receipt Date: 20140508
  Transmission Date: 20141212
  Serious: Yes (Hospitalization)
  Sender: FDA-Public Use
  Company Number: US-PFIZER INC-2014124838

PATIENT
  Sex: Female

DRUGS (2)
  1. LYRICA [Suspect]
     Indication: FIBROMYALGIA
     Dosage: UNK
     Dates: start: 2009, end: 20140429
  2. LYRICA [Suspect]
     Dosage: UNK
     Dates: start: 2014

REACTIONS (4)
  - Spinal disorder [Unknown]
  - Tenderness [Unknown]
  - Pain [Unknown]
  - Drug ineffective [Not Recovered/Not Resolved]
